FAERS Safety Report 9826868 (Version 1)
Quarter: 2014Q1

REPORT INFORMATION
  Report Type: Spontaneous
  Country: US (occurrence: US)
  Receive Date: 20140117
  Receipt Date: 20140117
  Transmission Date: 20141002
  Serious: No
  Sender: FDA-Public Use
  Company Number: US-GLAXOSMITHKLINE-A1009037A

PATIENT
  Age: 28 Year
  Sex: Female

DRUGS (1)
  1. PROMACTA [Suspect]
     Dosage: 150MG PER DAY
     Route: 048
     Dates: start: 20121120

REACTIONS (4)
  - Eye pruritus [Unknown]
  - Dizziness [Unknown]
  - Platelet count decreased [Unknown]
  - Pain [Unknown]
